FAERS Safety Report 5512122-2 (Version None)
Quarter: 2007Q4

REPORT INFORMATION
  Report Type: 
  Country: None (occurrence: None)
  Receive Date: 20071109
  Receipt Date: 20070724
  Transmission Date: 20080405
  Serious: Yes (Other)
  Sender: FDA-Public Use
  Company Number: CN-PFIZER INC-2007093232

PATIENT
  Age: 45 Year
  Sex: Male

DRUGS (13)
  1. LIPITOR [Suspect]
     Indication: HYPERLIPIDAEMIA
     Route: 048
     Dates: start: 20070714, end: 20070717
  2. SIMVASTATIN [Suspect]
     Indication: HYPERLIPIDAEMIA
     Route: 048
     Dates: start: 20070618, end: 20070713
  3. ASPIRIN [Concomitant]
     Route: 048
  4. CLOPIDOGREL [Concomitant]
     Route: 048
  5. HEPARIN [Concomitant]
     Route: 058
  6. BETALOC [Concomitant]
     Route: 048
  7. CAPTOPRIL [Concomitant]
     Route: 048
  8. LEVOFLOXACIN [Concomitant]
     Route: 042
  9. DIAZEPAM [Concomitant]
     Route: 048
  10. AMIODARONE HCL [Concomitant]
     Route: 048
  11. TIENAM [Concomitant]
     Route: 042
  12. CEFOPERAZONE SODIUM [Concomitant]
     Route: 042
  13. AMOXICILLIN + CLAVULANATE POTASSIUM [Concomitant]
     Route: 042

REACTIONS (6)
  - ALANINE AMINOTRANSFERASE INCREASED [None]
  - ASPARTATE AMINOTRANSFERASE INCREASED [None]
  - BLOOD CREATINE PHOSPHOKINASE INCREASED [None]
  - BLOOD CREATINE PHOSPHOKINASE MB INCREASED [None]
  - BLOOD LACTATE DEHYDROGENASE INCREASED [None]
  - TROPONIN I INCREASED [None]
